FAERS Safety Report 8012611-5 (Version None)
Quarter: 2011Q4

REPORT INFORMATION
  Report Type: 
  Country: None (occurrence: None)
  Receive Date: 20111222
  Receipt Date: 20111208
  Transmission Date: 20120403
  Serious: Yes (Other)
  Sender: FDA-Public Use
  Company Number: 2011-088

PATIENT
  Age: 75 Year
  Sex: Male

DRUGS (8)
  1. XANAX [Concomitant]
  2. CHEMOTHERAPY DRUG (CHEMOTHERAPY DRUG) [Concomitant]
  3. MORPHINE SULFATE INJ [Concomitant]
  4. LYRICA [Concomitant]
  5. MORPHINE SULFATE INJ [Suspect]
     Dosage: 0.17 MG, ONCE/HOUR, INRATHECAL
     Route: 037
  6. PRIALT [Suspect]
     Indication: NEURALGIA
     Dosage: 0.2 UG, ONCE/HOUR, INTRATHECAL 0.04 UG, ONCE/HOUR, INTRATHECAL 0.08 UG, ONCE/HOUR, INTRATHECAL
     Route: 037
     Dates: start: 20110101, end: 20110101
  7. PRIALT [Suspect]
     Indication: NEURALGIA
     Dosage: 0.2 UG, ONCE/HOUR, INTRATHECAL 0.04 UG, ONCE/HOUR, INTRATHECAL 0.08 UG, ONCE/HOUR, INTRATHECAL
     Route: 037
     Dates: start: 20110211, end: 20110304
  8. PRIALT [Suspect]
     Indication: NEURALGIA
     Dosage: 0.2 UG, ONCE/HOUR, INTRATHECAL 0.04 UG, ONCE/HOUR, INTRATHECAL 0.08 UG, ONCE/HOUR, INTRATHECAL
     Route: 037
     Dates: start: 20110101, end: 20110101

REACTIONS (3)
  - URINARY RETENTION [None]
  - THROMBOCYTOPENIA [None]
  - URINARY TRACT DISORDER [None]
